FAERS Safety Report 15492260 (Version 2)
Quarter: 2018Q4

REPORT INFORMATION
  Report Type: Spontaneous
  Country: US (occurrence: US)
  Receive Date: 20181012
  Receipt Date: 20181014
  Transmission Date: 20190205
  Serious: No
  Sender: FDA-Public Use
  Company Number: US-HETERO CORPORATE-HET2018US01033

PATIENT
  Sex: Female
  Weight: 68 kg

DRUGS (1)
  1. LOSARTAN. [Suspect]
     Active Substance: LOSARTAN
     Indication: ASTHMA
     Dosage: 50 MG, QD
     Route: 065
     Dates: start: 20180804, end: 201809

REACTIONS (4)
  - Wrong product administered [Unknown]
  - Lethargy [Recovering/Resolving]
  - Product commingling [Unknown]
  - Fatigue [Recovering/Resolving]
